FAERS Safety Report 17919420 (Version 1)
Quarter: 2020Q2

REPORT INFORMATION
  Report Type: Spontaneous
  Country: US (occurrence: US)
  Receive Date: 20200619
  Receipt Date: 20200619
  Transmission Date: 20200714
  Serious: No
  Sender: FDA-Public Use
  Company Number: US-CATALYST PHARMACEUTICALS, INC-2020CAT00135

PATIENT
  Sex: Female
  Weight: 49.89 kg

DRUGS (8)
  1. MESTINON [Concomitant]
     Active Substance: PYRIDOSTIGMINE BROMIDE
  2. GAMMAGLOBULIN [Concomitant]
     Active Substance: HUMAN IMMUNOGLOBULIN G
  3. VITAMIN B12 [Concomitant]
     Active Substance: CYANOCOBALAMIN
  4. IVIG [Concomitant]
     Active Substance: HUMAN IMMUNOGLOBULIN G
  5. CARAFATE [Concomitant]
     Active Substance: SUCRALFATE
  6. VITAMIN C [Concomitant]
     Active Substance: ASCORBIC ACID
  7. FIRDAPSE [Suspect]
     Active Substance: AMIFAMPRIDINE
     Indication: MYASTHENIC SYNDROME
     Dosage: 5 MG, 2X/DAY
     Route: 048
     Dates: start: 20190314
  8. KEPPRA [Concomitant]
     Active Substance: LEVETIRACETAM

REACTIONS (1)
  - Herpes zoster [Not Recovered/Not Resolved]
